FAERS Safety Report 6784770-3 (Version None)
Quarter: 2010Q2

REPORT INFORMATION
  Report Type: 
  Country: None (occurrence: None)
  Receive Date: 20100622
  Receipt Date: 20100609
  Transmission Date: 20101027
  Serious: Yes (Other)
  Sender: FDA-Public Use
  Company Number: PHHY2010IT38747

PATIENT
  Age: 54 Year
  Sex: Female

DRUGS (3)
  1. ZOMETA [Suspect]
     Indication: METASTASES TO BONE
     Dosage: 4 MG EVERY 28 DAYS
     Route: 042
  2. PACLITAXEL [Concomitant]
  3. TAMOXIFEN [Concomitant]

REACTIONS (14)
  - BONE DEBRIDEMENT [None]
  - BONE EROSION [None]
  - BONE LESION [None]
  - FISTULA [None]
  - JAW FRACTURE [None]
  - JAW OPERATION [None]
  - METASTASES TO LUNG [None]
  - OSTEOLYSIS [None]
  - OSTEONECROSIS [None]
  - OSTEONECROSIS OF JAW [None]
  - PAIN IN EXTREMITY [None]
  - PAIN IN JAW [None]
  - SKIN LESION [None]
  - TOOTH EXTRACTION [None]
